FAERS Safety Report 4958605-5 (Version None)
Quarter: 2006Q1

REPORT INFORMATION
  Report Type: 
  Country: None (occurrence: None)
  Receive Date: 20060127
  Receipt Date: 20050110
  Transmission Date: 20060701
  Serious: Yes (Other)
  Sender: FDA-Public Use
  Company Number: 05-01-0051

PATIENT
  Age: 33 Year
  Sex: Female
  Weight: 87.0906 kg

DRUGS (6)
  1. CLOZAPINE [Suspect]
     Indication: SCHIZOAFFECTIVE DISORDER
     Dosage: 25-150MG QD, ORAL
     Route: 048
     Dates: start: 20041101, end: 20050101
  2. ORTHO TRI-CYCLEN (CILEST) [Concomitant]
  3. LITHIUM (LITHIUM) [Concomitant]
  4. OLANZAPINE [Concomitant]
  5. PANTOPRAZOLE SODIUM [Concomitant]
  6. CLONAZEPAM [Concomitant]

REACTIONS (4)
  - DIARRHOEA [None]
  - NAUSEA [None]
  - NEUTROPENIA [None]
  - VOMITING [None]
